FAERS Safety Report 6702772-X (Version None)
Quarter: 2010Q2

REPORT INFORMATION
  Report Type: 
  Country: None (occurrence: None)
  Receive Date: 20100429
  Receipt Date: 20100419
  Transmission Date: 20101027
  Serious: Yes (Other)
  Sender: FDA-Public Use
  Company Number: US-ELI_LILLY_AND_COMPANY-US201004005988

PATIENT
  Sex: Female

DRUGS (33)
  1. FORTEO [Suspect]
     Indication: OSTEOPOROSIS
     Dosage: 20 UG, UNK
     Dates: end: 20100402
  2. AVINZA [Concomitant]
     Dosage: 90 MG, 2/D
  3. VITAMIN B-12 [Concomitant]
     Dosage: UNK, WEEKLY (1/W)
  4. VITAMIN D [Concomitant]
     Dosage: 10000 U, DAILY (1/D)
  5. VITAMIN D [Concomitant]
     Dosage: 50000 U, WEEKLY (1/W)
  6. VITAMIN C [Concomitant]
  7. PRENATAL VITAMINS /01549301/ [Concomitant]
  8. COQ10 [Concomitant]
     Dosage: 150 MG, DAILY (1/D)
  9. VITAMIN E [Concomitant]
     Dosage: 400 MG, DAILY (1/D)
  10. HYDROCHLOROTHIAZIDE [Concomitant]
     Dosage: UNK, AS NEEDED
  11. BUMETANIDE [Concomitant]
     Dosage: UNK, AS NEEDED
  12. SPIRONOLACTONE [Concomitant]
     Dosage: UNK, AS NEEDED
  13. CALTRATE                           /00108001/ [Concomitant]
     Dosage: 600 MG, 2/D
  14. IMURAN [Concomitant]
     Dosage: UNK, UNK
  15. PREDNISONE [Concomitant]
  16. SYNTHROID [Concomitant]
     Dosage: 0.125 D/F, UNK
  17. AZATHIOPRINE [Concomitant]
     Dosage: 1 D/F, 2/D
  18. HYDROXYCHLOROQUINE SULFATE [Concomitant]
     Dosage: 200 MG, DAILY (1/D)
  19. POTASSIUM [Concomitant]
     Dosage: 20 MEQ, 2/D
  20. COLACE [Concomitant]
     Dosage: 2 D/F, 2/D
  21. ZEBUTAL [Concomitant]
  22. HYDROCODONE BITARTRATE [Concomitant]
  23. PERCOCET [Concomitant]
  24. FEMHRT [Concomitant]
     Dosage: 1 D/F, DAILY (1/D)
  25. NYSTOP [Concomitant]
  26. NYSTATIN [Concomitant]
  27. SOMA [Concomitant]
     Dosage: UNK, AS NEEDED
  28. DIAZEPAM [Concomitant]
     Dosage: UNK, 3/D
  29. RITALIN [Concomitant]
     Dosage: 20 MG, 3/D
  30. ALLI [Concomitant]
  31. NEXIUM [Concomitant]
  32. PEPCID [Concomitant]
  33. TUMS [Concomitant]

REACTIONS (10)
  - ATELECTASIS [None]
  - BLOOD PRESSURE INCREASED [None]
  - CONVULSION [None]
  - DISORIENTATION [None]
  - DYSKINESIA [None]
  - FRACTURE [None]
  - MALAISE [None]
  - MUSCLE TIGHTNESS [None]
  - RIB FRACTURE [None]
  - SCREAMING [None]
